FAERS Safety Report 10515453 (Version 2)
Quarter: 2014Q4

REPORT INFORMATION
  Report Type: Spontaneous
  Country: US (occurrence: None)
  Receive Date: 20141009
  Receipt Date: 20141023
  Transmission Date: 20150528
  Serious: Yes (Hospitalization, Other)
  Sender: FDA-Public Use
  Company Number: ADR-2014-01836

PATIENT
  Sex: Male

DRUGS (9)
  1. LIORESAL [Suspect]
     Active Substance: BACLOFEN
     Indication: MUSCLE SPASTICITY
  2. TRILEPTAL [Suspect]
     Active Substance: OXCARBAZEPINE
  3. CLONAZEPAM. [Suspect]
     Active Substance: CLONAZEPAM
  4. FLAGYL [Suspect]
     Active Substance: METRONIDAZOLE\METRONIDAZOLE HYDROCHLORIDE
  5. XANAX [Suspect]
     Active Substance: ALPRAZOLAM
  6. PREVACID [Suspect]
     Active Substance: LANSOPRAZOLE
  7. MIRALAX [Suspect]
     Active Substance: POLYETHYLENE GLYCOL 3350
  8. PULMICORT TURBUHALER [Suspect]
     Active Substance: BUDESONIDE
  9. ZANTAC [Suspect]
     Active Substance: RANITIDINE HYDROCHLORIDE

REACTIONS (3)
  - Device occlusion [None]
  - Incorrect dose administered by device [None]
  - Dystonia [None]
